FAERS Safety Report 4480130-9 (Version None)
Quarter: 2004Q4

REPORT INFORMATION
  Report Type: 
  Country: None (occurrence: None)
  Receive Date: 20041018
  Receipt Date: 20040930
  Transmission Date: 20050328
  Serious: Yes (Disabling, Other)
  Sender: FDA-Public Use
  Company Number: 2004-BP-08325YA

PATIENT
  Age: 55 Year
  Sex: Male

DRUGS (4)
  1. OMNIC CAPSULES (TAMSULOSIN) [Suspect]
     Indication: BENIGN PROSTATIC HYPERPLASIA
     Dosage: PO
     Route: 048
     Dates: start: 20040901, end: 20040909
  2. URTICA SPP EXTRACT [Concomitant]
  3. GINKO BILBOA (GINGO BILBOA) [Concomitant]
  4. PANTOPRAZOLE SODIUM [Concomitant]

REACTIONS (5)
  - CONDITION AGGRAVATED [None]
  - DEAFNESS [None]
  - INNER EAR DISORDER [None]
  - STRESS SYMPTOMS [None]
  - TINNITUS [None]
